FAERS Safety Report 9770986 (Version 1)
Quarter: 2013Q4

REPORT INFORMATION
  Report Type: Spontaneous
  Country: US (occurrence: US)
  Receive Date: 20131218
  Receipt Date: 20131218
  Transmission Date: 20140711
  Serious: No
  Sender: FDA-Public Use
  Company Number: US-MYLANLABS-2013S1010139

PATIENT
  Age: 65 Year
  Sex: Female
  Weight: 70 kg

DRUGS (3)
  1. ROCURONIUM BROMIDE INJECTION [Suspect]
     Indication: ENDOTRACHEAL INTUBATION
     Route: 042
     Dates: start: 20130402, end: 20130402
  2. ETOMIDATE [Concomitant]
     Indication: ENDOTRACHEAL INTUBATION
     Dosage: PUSH
     Route: 042
     Dates: start: 20130402, end: 20130402
  3. SUCCINYLCHOLINE [Concomitant]
     Indication: ENDOTRACHEAL INTUBATION
     Dates: start: 20130402, end: 20130402

REACTIONS (1)
  - Drug ineffective [Not Recovered/Not Resolved]
